FAERS Safety Report 18229774 (Version 1)
Quarter: 2020Q3

REPORT INFORMATION
  Report Type: Spontaneous
  Country: US (occurrence: US)
  Receive Date: 20200904
  Receipt Date: 20200904
  Transmission Date: 20201103
  Serious: No
  Sender: FDA-Public Use
  Company Number: US-BAUSCH-BL-2020-023829

PATIENT
  Sex: Female

DRUGS (3)
  1. UCERIS [Suspect]
     Active Substance: BUDESONIDE
     Dosage: SKIPPED MORNING DOSE, ONLY TOOK MEDICATION IN THE EVENING ?DOSE REDUCED
     Route: 054
     Dates: start: 20200813
  2. UCERIS [Suspect]
     Active Substance: BUDESONIDE
     Indication: COLITIS ULCERATIVE
     Dosage: ON 11/AUG/2020, PATIENT TOOK EVENING DOSE/ON 12/AUG/2020, PATIENT TOOK MORNING DOSE
     Route: 054
     Dates: start: 20200811, end: 20200812
  3. AEROSOL CONTAINER [Suspect]
     Active Substance: DEVICE
     Indication: COLITIS ULCERATIVE
     Route: 054

REACTIONS (4)
  - Dizziness [Unknown]
  - Headache [Unknown]
  - Nausea [Unknown]
  - Malaise [Recovering/Resolving]

NARRATIVE: CASE EVENT DATE: 2020
